FAERS Safety Report 9605864 (Version 1)
Quarter: 2013Q4

REPORT INFORMATION
  Report Type: Report from Study
  Country: BR (occurrence: BR)
  Receive Date: 20131008
  Receipt Date: 20131008
  Transmission Date: 20140711
  Serious: Yes (Other)
  Sender: FDA-Public Use
  Company Number: PHHY2013BR111575

PATIENT
  Sex: Female
  Weight: 48 kg

DRUGS (6)
  1. EXELON PATCH [Suspect]
     Dosage: PATCH 5 (4.6 MG/24 HOURS)
     Route: 062
     Dates: start: 201308
  2. EXELON PATCH [Suspect]
     Dosage: RECEIVED TOTAL 30 PATCHES
     Route: 062
     Dates: end: 20130930
  3. BROMAZEPAM [Concomitant]
     Indication: INSOMNIA
     Dosage: UNK UKN, UNK
  4. OMEPRAZOLE [Concomitant]
     Dosage: UNK UKN, UNK
  5. CALDE [Concomitant]
     Dosage: UNK UKN, UNK
  6. SIMVASTATIN [Concomitant]
     Dosage: UNK UKN, UNK

REACTIONS (2)
  - Femur fracture [Recovered/Resolved]
  - Confusional state [Not Recovered/Not Resolved]
